FAERS Safety Report 11295524 (Version 1)
Quarter: 2015Q3

REPORT INFORMATION
  Report Type: Spontaneous
  Country: US (occurrence: US)
  Receive Date: 20150722
  Receipt Date: 20150722
  Transmission Date: 20151125
  Serious: No
  Sender: FDA-Public Use
  Company Number: US-ELI_LILLY_AND_COMPANY-US200903000284

PATIENT
  Age: 74 Year
  Sex: Female
  Weight: 67.12 kg

DRUGS (1)
  1. EVISTA [Suspect]
     Active Substance: RALOXIFENE HYDROCHLORIDE
     Dosage: 60 MG, DAILY (1/D)
     Route: 065
     Dates: start: 20081115

REACTIONS (6)
  - Middle insomnia [Recovering/Resolving]
  - Gait disturbance [Recovering/Resolving]
  - Muscle tightness [Unknown]
  - Muscle spasms [Unknown]
  - Pain in extremity [Unknown]
  - Groin pain [Unknown]

NARRATIVE: CASE EVENT DATE: 200812
